FAERS Safety Report 8450115-6 (Version None)
Quarter: 2012Q2

REPORT INFORMATION
  Report Type: 
  Country: None (occurrence: None)
  Receive Date: 20120620
  Receipt Date: 20120611
  Transmission Date: 20120825
  Serious: Yes (Hospitalization, Other)
  Sender: FDA-Public Use
  Company Number: US-US-EMD SERONO, INC.-7140521

PATIENT
  Sex: Male

DRUGS (2)
  1. SAIZEN [Suspect]
     Indication: GROWTH HORMONE DEFICIENCY
     Route: 058
  2. DESMOPRESSIN ACETATE (DDAVP) [Concomitant]
     Indication: DIABETES INSIPIDUS

REACTIONS (7)
  - ASPIRATION [None]
  - DYSPHAGIA [None]
  - COUGH [None]
  - POLYURIA [None]
  - CONSTIPATION [None]
  - OSTEOTOMY [None]
  - POLYDIPSIA [None]
